FAERS Safety Report 6991669-6 (Version None)
Quarter: 2010Q3

REPORT INFORMATION
  Report Type: 
  Country: None (occurrence: None)
  Receive Date: 20100915
  Receipt Date: 20100915
  Transmission Date: 20110219
  Serious: Yes (Other)
  Sender: FDA-Public Use
  Company Number: None

PATIENT
  Age: 8 Year
  Sex: Female
  Weight: 39.4629 kg

DRUGS (1)
  1. RISPERDAL [Suspect]
     Dosage: 0.25MG 1 IN AM 1 AT BEDTIME

REACTIONS (2)
  - AGGRESSION [None]
  - PRODUCT SUBSTITUTION ISSUE [None]
